FAERS Safety Report 5887276-9 (Version None)
Quarter: 2008Q3

REPORT INFORMATION
  Report Type: 
  Country: None (occurrence: None)
  Receive Date: 20080915
  Receipt Date: 20080829
  Transmission Date: 20090109
  Serious: Yes (Hospitalization)
  Sender: FDA-Public Use
  Company Number: 2008AL010141

PATIENT
  Age: 60 Year
  Sex: Female
  Weight: 104.3273 kg

DRUGS (1)
  1. DIGOXIN [Suspect]
     Indication: CARDIAC DISORDER
     Dosage: 0.125MG DAILY PO
     Route: 048

REACTIONS (4)
  - CARDIAC ARREST [None]
  - CARDIAC FLUTTER [None]
  - DEPRESSED MOOD [None]
  - HEART RATE INCREASED [None]
